FAERS Safety Report 9491076 (Version 1)
Quarter: 2013Q3

REPORT INFORMATION
  Report Type: Spontaneous
  Country: AR (occurrence: AR)
  Receive Date: 20130830
  Receipt Date: 20130830
  Transmission Date: 20140515
  Serious: Yes (Disabling, Other)
  Sender: FDA-Public Use
  Company Number: AR-AMGEN-ARGSP2013060901

PATIENT
  Age: 64 Year
  Sex: Female

DRUGS (3)
  1. ENBREL [Suspect]
     Indication: RHEUMATOID ARTHRITIS
     Dosage: 50 MG, WEEKLY
     Route: 065
     Dates: start: 20120201
  2. METHOTREXATE /00113802/ [Suspect]
     Indication: PRODUCT USED FOR UNKNOWN INDICATION
     Dosage: 15 UNK, UNK
     Route: 065
  3. METHOTREXATE /00113802/ [Suspect]
     Dosage: 20 UNK, UNK
     Route: 065

REACTIONS (2)
  - Osteoarthritis [Unknown]
  - Drug ineffective [Unknown]
